FAERS Safety Report 7872091-7 (Version None)
Quarter: 2011Q4

REPORT INFORMATION
  Report Type: 
  Country: None (occurrence: None)
  Receive Date: 20111029
  Receipt Date: 20110314
  Transmission Date: 20120403
  Serious: No
  Sender: FDA-Public Use
  Company Number: US-AMGEN-USASP2011014079

PATIENT
  Age: 53 Year
  Sex: Male

DRUGS (2)
  1. NOVOCAIN [Concomitant]
  2. ENBREL [Suspect]
     Indication: RHEUMATOID ARTHRITIS
     Dosage: 50 MG, QWK
     Dates: start: 20110209

REACTIONS (11)
  - HEADACHE [None]
  - RHINORRHOEA [None]
  - CHILLS [None]
  - UPPER RESPIRATORY TRACT INFECTION [None]
  - COUGH [None]
  - MUSCULOSKELETAL CHEST PAIN [None]
  - HYPERHIDROSIS [None]
  - TOOTH FRACTURE [None]
  - GINGIVAL PAIN [None]
  - PYREXIA [None]
  - SNEEZING [None]
